FAERS Safety Report 7014132-5 (Version None)
Quarter: 2010Q3

REPORT INFORMATION
  Report Type: 
  Country: None (occurrence: None)
  Receive Date: 20100927
  Receipt Date: 20100913
  Transmission Date: 20110219
  Serious: Yes (Hospitalization)
  Sender: FDA-Public Use
  Company Number: PHHY2010DE42048

PATIENT
  Sex: Male
  Weight: 123 kg

DRUGS (16)
  1. ALISKIREN ALI+ [Suspect]
     Indication: HYPERTENSION
     Dosage: UNK
     Route: 048
     Dates: start: 20081211, end: 20090905
  2. ORAL ANTIDIABETICS [Concomitant]
     Indication: DIABETES MELLITUS
  3. ACE INHIBITOR [Concomitant]
     Dosage: UNK
  4. CALCIUM CHANNEL BLOCKERS [Concomitant]
     Dosage: UNK
  5. DIURETICS [Concomitant]
     Dosage: UNK
  6. VASODILATORS USED IN CARDIAC DISEASES [Concomitant]
     Dosage: UNK
  7. ANTICOAGULANTS [Concomitant]
     Dosage: UNK
  8. ANTIADRENERGIC AGENTS, CENTRALLY ACTING [Concomitant]
     Dosage: UNK
     Dates: start: 20091011
  9. STATIN [Concomitant]
     Dosage: UNK
  10. CAPTOHEXAL [Concomitant]
     Dosage: 50 MG 1-0-1
  11. ALDACTONE [Concomitant]
     Dosage: 25 MG 1-0-1
  12. FUROSEMIDE [Concomitant]
     Dosage: 40 MG 1-0-1
  13. AMLODIPINE [Concomitant]
     Dosage: 05 MG 1-0-1
  14. NITROGLYCERIN [Concomitant]
     Dosage: WHEN REQUIERED
  15. MARCUMAR [Concomitant]
     Dosage: UNK
  16. MOXONIDINE [Concomitant]
     Dosage: 0.2 MG
     Dates: start: 20091011

REACTIONS (4)
  - ANGINA PECTORIS [None]
  - DYSPNOEA EXERTIONAL [None]
  - HYPERTENSIVE CRISIS [None]
  - HYPERTENSIVE HEART DISEASE [None]
